FAERS Safety Report 6913681-5 (Version None)
Quarter: 2010Q3

REPORT INFORMATION
  Report Type: 
  Country: None (occurrence: None)
  Receive Date: 20100809
  Receipt Date: 20100730
  Transmission Date: 20110219
  Serious: Yes (Hospitalization, Other)
  Sender: FDA-Public Use
  Company Number: US-SANOFI-AVENTIS-A03200501825

PATIENT
  Age: 64 Year
  Sex: Female
  Weight: 52.2 kg

DRUGS (12)
  1. CLOPIDOGREL BISULFATE [Suspect]
     Indication: ANGIOGRAM
     Dosage: UNIT DOSE: 75 MG
     Route: 048
     Dates: start: 20050329, end: 20051229
  2. CLOPIDOGREL BISULFATE [Suspect]
     Indication: ANGIOPLASTY
     Dosage: UNIT DOSE: 75 MG
     Route: 048
     Dates: start: 20050329, end: 20051229
  3. CLOPIDOGREL BISULFATE [Suspect]
     Indication: STENT PLACEMENT
     Dosage: UNIT DOSE: 75 MG
     Route: 048
     Dates: start: 20050329, end: 20051229
  4. CLOPIDOGREL BISULFATE [Suspect]
     Indication: CORONARY ARTERY DISEASE
     Dosage: UNIT DOSE: 75 MG
     Route: 048
     Dates: start: 20050329, end: 20051229
  5. ASPIRIN [Suspect]
     Indication: CORONARY ARTERY DISEASE
     Dosage: UNIT DOSE: 81 MG
     Route: 048
     Dates: start: 20050329
  6. TOPROL-XL [Suspect]
     Indication: PRODUCT USED FOR UNKNOWN INDICATION
     Route: 048
     Dates: start: 20050329, end: 20050101
  7. LIPITOR [Concomitant]
     Indication: PRODUCT USED FOR UNKNOWN INDICATION
     Dosage: UNIT DOSE: 40 MG
     Route: 048
     Dates: start: 20050329
  8. SEPTRA [Concomitant]
  9. LORAZEPAM [Concomitant]
  10. ZYRTEC [Concomitant]
  11. MULTIPLE VITAMINS [Concomitant]
  12. DICLOFENAC [Concomitant]

REACTIONS (15)
  - ALTERED STATE OF CONSCIOUSNESS [None]
  - ANAEMIA [None]
  - ARTERIOSCLEROSIS CORONARY ARTERY [None]
  - CONSTIPATION [None]
  - CONTUSION [None]
  - DIZZINESS [None]
  - FATIGUE [None]
  - GASTROINTESTINAL HAEMORRHAGE [None]
  - HAEMATOMA [None]
  - HAEMORRHAGE SUBCUTANEOUS [None]
  - HAEMORRHAGIC DIATHESIS [None]
  - HYPHAEMA [None]
  - OCULAR HYPERAEMIA [None]
  - POST PROCEDURAL HAEMORRHAGE [None]
  - RECTAL HAEMORRHAGE [None]
